FAERS Safety Report 23023727 (Version 1)
Quarter: 2023Q4

REPORT INFORMATION
  Report Type: Spontaneous
  Country: US (occurrence: US)
  Receive Date: 20231003
  Receipt Date: 20231003
  Transmission Date: 20240109
  Serious: Yes (Death, Other)
  Sender: FDA-Public Use
  Company Number: US-BRISTOL-MYERS SQUIBB COMPANY-2023-138611

PATIENT
  Sex: Male
  Weight: 68.04 kg

DRUGS (2)
  1. REVLIMID [Suspect]
     Active Substance: LENALIDOMIDE
     Indication: Follicular lymphoma
     Dosage: DOSE : 20 MG;     FREQ : 1 PER DAY FOR 21 DAYS AND 1 WEEK OFF
     Route: 048
     Dates: end: 20230705
  2. REVLIMID [Suspect]
     Active Substance: LENALIDOMIDE
     Indication: B-cell lymphoma

REACTIONS (2)
  - Malignant neoplasm progression [Fatal]
  - Treatment failure [Unknown]
